FAERS Safety Report 8928116 (Version 3)
Quarter: 2012Q4

REPORT INFORMATION
  Report Type: 
  Country: US (occurrence: US)
  Receive Date: 20121128
  Receipt Date: 20121217
  Transmission Date: 20130627
  Serious: Yes (Hospitalization)
  Sender: FDA-Public Use
  Company Number: US-BIOGENIDEC-2012BI054630

PATIENT
  Age: 61 Year
  Sex: Male

DRUGS (1)
  1. TYSABRI [Suspect]
     Indication: MULTIPLE SCLEROSIS
     Route: 042
     Dates: start: 20110606, end: 20121002

REACTIONS (6)
  - Motor dysfunction [Not Recovered/Not Resolved]
  - Asthenia [Not Recovered/Not Resolved]
  - Post procedural complication [Recovered/Resolved]
  - Multiple sclerosis relapse [Recovered/Resolved]
  - Back pain [Recovered/Resolved]
  - Nerve injury [Recovered/Resolved]
